FAERS Safety Report 15421935 (Version 6)
Quarter: 2020Q1

REPORT INFORMATION
  Report Type: Spontaneous
  Country: US (occurrence: US)
  Receive Date: 20180924
  Receipt Date: 20200219
  Transmission Date: 20200409
  Serious: Yes (Hospitalization)
  Sender: FDA-Public Use
  Company Number: US-ACTELION-A-NJ2018-179215

PATIENT
  Sex: Female
  Weight: 82.99 kg

DRUGS (3)
  1. UPTRAVI [Suspect]
     Active Substance: SELEXIPAG
     Indication: PULMONARY ARTERIAL HYPERTENSION
     Dosage: 400 MCG, BID
     Route: 048
  2. ADCIRCA [Concomitant]
     Active Substance: TADALAFIL
  3. OPSUMIT [Suspect]
     Active Substance: MACITENTAN
     Indication: PULMONARY ARTERIAL HYPERTENSION
     Dosage: 10 MG, QD
     Route: 048

REACTIONS (14)
  - Abdominal pain [Unknown]
  - Dizziness [Unknown]
  - Fluid retention [Unknown]
  - Fatigue [Unknown]
  - Syncope [Unknown]
  - Pulmonary veno-occlusive disease [Unknown]
  - Cough [Unknown]
  - Nausea [Unknown]
  - Hypotension [Unknown]
  - Vomiting [Unknown]
  - Presyncope [Unknown]
  - Dyspnoea exertional [Not Recovered/Not Resolved]
  - Nasopharyngitis [Unknown]
  - Oedema peripheral [Unknown]
